FAERS Safety Report 6201443-6 (Version None)
Quarter: 2009Q2

REPORT INFORMATION
  Report Type: 
  Country: None (occurrence: None)
  Receive Date: 20090526
  Receipt Date: 20090520
  Transmission Date: 20091009
  Serious: Yes (Hospitalization)
  Sender: FDA-Public Use
  Company Number: GB-ROCHE-621266

PATIENT
  Sex: Female
  Weight: 95.3 kg

DRUGS (11)
  1. ORLISTAT [Suspect]
     Indication: OBESITY
     Route: 048
     Dates: start: 20090217, end: 20090301
  2. SIMVASTATIN [Concomitant]
     Route: 048
     Dates: start: 20010101
  3. ATENOLOL [Concomitant]
     Indication: HYPERTENSION
     Dosage: INDICATION ALSO REPORTED AS IHD
     Route: 048
     Dates: start: 20010101
  4. FRUSEMIDE [Concomitant]
     Indication: FLUID RETENTION
     Route: 048
  5. RAMIPRIL [Concomitant]
     Indication: HYPERTENSION
     Dosage: INDICATION ALSO REPORTED AS IHD
     Route: 048
     Dates: start: 20010101
  6. DOXAZOSIN MESYLATE [Concomitant]
     Indication: BLOOD PRESSURE
     Route: 048
  7. ASPIRIN [Concomitant]
     Indication: HYPERTENSION
     Dosage: INDICATION ALSO REPORTED AS IHD
     Route: 048
     Dates: start: 20080102
  8. METFORMIN HCL [Concomitant]
     Route: 048
     Dates: start: 20010101
  9. HUMALOG [Concomitant]
     Dosage: 24 UNITS MORNING AND 24 UNITS EVENING, ROUTE: INJECTION.
     Dates: start: 20010101
  10. VITAMIN B-12 [Concomitant]
     Indication: ANAEMIA
     Dosage: FRQUENCY: ONCE MONTHLY, ROUTE: INJECTION.
     Route: 050
  11. DOXYCYCLINE [Concomitant]
     Route: 048

REACTIONS (2)
  - BACK PAIN [None]
  - HYPERHIDROSIS [None]
